FAERS Safety Report 24383397 (Version 1)
Quarter: 2024Q4

REPORT INFORMATION
  Report Type: Spontaneous
  Country: US (occurrence: US)
  Receive Date: 20241001
  Receipt Date: 20241001
  Transmission Date: 20250114
  Serious: Yes (Other)
  Sender: PFIZER
  Company Number: US-HOSPIRA-1590788

PATIENT
  Age: 15 Year
  Sex: Male

DRUGS (4)
  1. VINCRISTINE SULFATE [Suspect]
     Active Substance: VINCRISTINE SULFATE
     Indication: Precursor B-lymphoblastic lymphoma
     Dosage: 1.5 MG/M2
  2. ASPARAGINASE [Suspect]
     Active Substance: ASPARAGINASE
     Indication: Precursor B-lymphoblastic lymphoma
     Dosage: 2500 IU/M2
  3. DAUNORUBICIN [Suspect]
     Active Substance: DAUNORUBICIN
     Indication: Precursor B-lymphoblastic lymphoma
     Dosage: 25 MG/M2
  4. PREDNISONE [Suspect]
     Active Substance: PREDNISONE
     Indication: Precursor B-lymphoblastic lymphoma
     Dosage: 60MG/M2/DAY

REACTIONS (3)
  - Neuropathy peripheral [Recovered/Resolved]
  - Inappropriate antidiuretic hormone secretion [Recovered/Resolved]
  - Metabolic dysfunction-associated steatohepatitis [Unknown]
